FAERS Safety Report 5091269-1 (Version None)
Quarter: 2006Q3

REPORT INFORMATION
  Report Type: 
  Country: None (occurrence: None)
  Receive Date: 20060727
  Receipt Date: 20060508
  Transmission Date: 20061208
  Serious: Yes (Other)
  Sender: FDA-Public Use
  Company Number: 2006062290

PATIENT
  Age: 30 Year
  Sex: Female

DRUGS (4)
  1. LYRICA [Suspect]
     Indication: ILL-DEFINED DISORDER
     Dosage: 150 MG (75 MG,2 IN 1 D),ORAL
     Route: 048
  2. ROBAXIN [Concomitant]
  3. TORADOL [Concomitant]
  4. DARVOCET [Concomitant]

REACTIONS (1)
  - PAIN IN EXTREMITY [None]
